FAERS Safety Report 24666220 (Version 1)
Quarter: 2024Q4

REPORT INFORMATION
  Report Type: Spontaneous
  Country: GB (occurrence: GB)
  Receive Date: 20241126
  Receipt Date: 20241126
  Transmission Date: 20250115
  Serious: Yes (Disabling, Other)
  Sender: SANDOZ
  Company Number: GB-SANDOZ-SDZ2024GB097740

PATIENT
  Age: 27 Year
  Sex: Male
  Weight: 76 kg

DRUGS (1)
  1. TYRUKO [Suspect]
     Active Substance: NATALIZUMAB-SZTN
     Indication: Multiple sclerosis
     Dosage: 300 MG, ONE SINGLE DOSE
     Route: 042
     Dates: start: 20241120

REACTIONS (4)
  - Muscular weakness [Not Recovered/Not Resolved]
  - Arthralgia [Not Recovered/Not Resolved]
  - Nausea [Not Recovered/Not Resolved]
  - Fatigue [Not Recovered/Not Resolved]

NARRATIVE: CASE EVENT DATE: 20241121
